FAERS Safety Report 5174203-5 (Version None)
Quarter: 2006Q4

REPORT INFORMATION
  Report Type: 
  Country: None (occurrence: None)
  Receive Date: 20061214
  Receipt Date: 20061130
  Transmission Date: 20070319
  Serious: Yes (Other)
  Sender: FDA-Public Use
  Company Number: US-ROCHE-473405

PATIENT
  Sex: Female

DRUGS (2)
  1. ACCUTANE [Suspect]
     Indication: DRUG USE FOR UNKNOWN INDICATION
     Dosage: START DATE REPORTED AS LATE 2000, AND STOP DATE AS EARLY 2001
     Route: 065
     Dates: start: 20001015, end: 20010315
  2. ACCUTANE [Suspect]
     Dosage: STOP DATE REPORTED AS EARLY 2003
     Route: 065
     Dates: start: 20021215, end: 20030315

REACTIONS (5)
  - COLITIS [None]
  - CROHN'S DISEASE [None]
  - DIVERTICULITIS [None]
  - INFLAMMATORY BOWEL DISEASE [None]
  - INTESTINAL HAEMORRHAGE [None]
